FAERS Safety Report 6255351-5 (Version None)
Quarter: 2009Q3

REPORT INFORMATION
  Report Type: 
  Country: None (occurrence: None)
  Receive Date: 20090702
  Receipt Date: 20090624
  Transmission Date: 20100115
  Serious: Yes (Hospitalization, Other)
  Sender: FDA-Public Use
  Company Number: US-ABBOTT-09P-163-0581820-06

PATIENT
  Sex: Female
  Weight: 59.1 kg

DRUGS (13)
  1. HUMIRA [Suspect]
     Indication: RHEUMATOID ARTHRITIS
     Route: 058
     Dates: start: 20010723, end: 20090427
  2. METHOTREXATE [Concomitant]
     Indication: RHEUMATOID ARTHRITIS
     Route: 048
     Dates: start: 20020524, end: 20090427
  3. LORCET-HD [Concomitant]
     Indication: RHEUMATOID ARTHRITIS
     Dosage: 1 TAB
     Dates: start: 19950101
  4. ALDAMETASONE DIPROPRONATE CREAM [Concomitant]
     Indication: DERMATITIS
     Dates: start: 20080828
  5. CLOBEX [Concomitant]
     Indication: DERMATITIS
     Dates: start: 20080828
  6. LEVAQUIN [Concomitant]
     Indication: BRONCHITIS CHRONIC
     Dates: start: 20090217, end: 20090226
  7. ESTRADIOL [Concomitant]
     Indication: MENOPAUSE
     Dates: start: 20050209
  8. LANSOPRAZOLE [Concomitant]
     Indication: GASTROOESOPHAGEAL REFLUX DISEASE
     Dates: start: 20050501
  9. ALBUTEROL W/IPRATROPIUM [Concomitant]
     Indication: BRONCHITIS CHRONIC
     Dates: start: 20050617
  10. CYMBALTA [Concomitant]
     Indication: ANXIETY
     Dates: start: 20071029
  11. LYRICA [Concomitant]
     Indication: FIBROMYALGIA
     Dates: start: 20071029
  12. AMITRIPTYLENE [Concomitant]
     Indication: INSOMNIA
     Dates: start: 20080610
  13. SOMA [Concomitant]
     Indication: MUSCLE STRAIN
     Dates: start: 20060119

REACTIONS (1)
  - SKIN FLAP NECROSIS [None]
